FAERS Safety Report 4366146-1 (Version None)
Quarter: 2004Q2

REPORT INFORMATION
  Report Type: 
  Country: None (occurrence: None)
  Receive Date: 20040524
  Receipt Date: 20040507
  Transmission Date: 20050107
  Serious: Yes (Hospitalization)
  Sender: FDA-Public Use
  Company Number: CA-SHR-04-022953

PATIENT
  Age: 55 Year
  Sex: Female

DRUGS (1)
  1. BETASERON [Suspect]
     Indication: MULTIPLE SCLEROSIS
     Dosage: 8 MIU, EVERY 2D, SUBCUTANEOUS
     Route: 058
     Dates: start: 20040102

REACTIONS (7)
  - BALANCE DISORDER [None]
  - CONDITION AGGRAVATED [None]
  - EATING DISORDER SYMPTOM [None]
  - FATIGUE [None]
  - MENTAL IMPAIRMENT [None]
  - TRIGEMINAL NEURALGIA [None]
  - WEIGHT DECREASED [None]
